FAERS Safety Report 7133256-5 (Version None)
Quarter: 2010Q4

REPORT INFORMATION
  Report Type: 
  Country: None (occurrence: None)
  Receive Date: 20101202
  Receipt Date: 20101125
  Transmission Date: 20110411
  Serious: Yes (Other)
  Sender: FDA-Public Use
  Company Number: GR-ABBOTT-10P-066-0687786-00

PATIENT
  Age: 53 Year
  Sex: Female

DRUGS (9)
  1. HUMIRA [Suspect]
     Indication: RHEUMATOID ARTHRITIS
     Route: 058
     Dates: start: 20091008, end: 20100501
  2. MTX [Concomitant]
     Indication: RHEUMATOID ARTHRITIS
     Dates: start: 20080501
  3. CORTISONE [Concomitant]
     Indication: RHEUMATOID ARTHRITIS
     Dates: start: 20080501
  4. DIAMICRON [Concomitant]
     Indication: DIABETES MELLITUS
  5. ATACAND [Concomitant]
     Indication: HYPERTENSION
  6. FOSAMAX [Concomitant]
     Indication: OSTEOPOROSIS
  7. IDEOS [Concomitant]
     Indication: OSTEOPOROSIS
  8. BARAKLUD [Concomitant]
     Indication: HEPATITIS B
     Dates: start: 20091001
  9. BARAKLUD [Concomitant]
     Indication: PROPHYLAXIS

REACTIONS (1)
  - DERMATITIS PSORIASIFORM [None]
